FAERS Safety Report 16669251 (Version 1)
Quarter: 2019Q3

REPORT INFORMATION
  Report Type: Spontaneous
  Country: US (occurrence: US)
  Receive Date: 20190805
  Receipt Date: 20190805
  Transmission Date: 20191004
  Serious: Yes (Hospitalization, Disabling)
  Sender: FDA-Public Use
  Company Number: None

PATIENT
  Age: 59 Year
  Sex: Male
  Weight: 65.25 kg

DRUGS (2)
  1. RESTASIS [Suspect]
     Active Substance: CYCLOSPORINE
     Indication: DRY EYE
     Dosage: ?          QUANTITY:1 DROP(S);?
     Route: 047
  2. MEDROL [Suspect]
     Active Substance: METHYLPREDNISOLONE
     Indication: COUGH
     Dosage: ?          OTHER FREQUENCY:6 DAY DOSE PACK;?

REACTIONS (2)
  - Necrosis [None]
  - Drug interaction [None]

NARRATIVE: CASE EVENT DATE: 20180601
